FAERS Safety Report 8600673-3 (Version None)
Quarter: 2012Q3

REPORT INFORMATION
  Report Type: 
  Country: None (occurrence: None)
  Receive Date: 20120817
  Receipt Date: 20120807
  Transmission Date: 20120928
  Serious: Yes (Hospitalization)
  Sender: FDA-Public Use
  Company Number: DE-UCBSA-063560

PATIENT
  Age: 71 Year
  Sex: Male

DRUGS (4)
  1. LEF [Concomitant]
     Dosage: 10 MG
  2. CERTOLIZUMAB [Suspect]
     Indication: RHEUMATOID ARTHRITIS
     Dosage: DOSE:400 MG
     Route: 058
     Dates: start: 20110301, end: 20110601
  3. ADALIMUMAB [Concomitant]
     Dosage: 40 MG
     Dates: start: 20110701
  4. LEF [Concomitant]
     Dosage: 20 MG

REACTIONS (1)
  - HIP ARTHROPLASTY [None]
